FAERS Safety Report 8811954 (Version 1)
Quarter: 2012Q4

REPORT INFORMATION
  Report Type: 
  Country: US (occurrence: US)
  Receive Date: 20120927
  Receipt Date: 20120927
  Transmission Date: 20130627
  Serious: Yes (Other)
  Sender: FDA-Public Use
  Company Number: US-PFIZER INC-2012237378

PATIENT

DRUGS (1)
  1. LYRICA [Suspect]
     Dosage: UNK
     Dates: start: 20120215

REACTIONS (1)
  - Suicide attempt [Unknown]
